FAERS Safety Report 21602012 (Version 1)
Quarter: 2022Q4

REPORT INFORMATION
  Report Type: Spontaneous
  Country: HR (occurrence: HR)
  Receive Date: 20221116
  Receipt Date: 20221116
  Transmission Date: 20230112
  Serious: Yes (Other)
  Sender: FDA-Public Use
  Company Number: HR-MLMSERVICE-2022103138887131

PATIENT
  Age: 57 Year
  Sex: Male

DRUGS (4)
  1. METHOTREXATE [Suspect]
     Active Substance: METHOTREXATE
     Indication: Rheumatoid arthritis
  2. PREDNISONE [Concomitant]
     Active Substance: PREDNISONE
     Indication: Rheumatoid arthritis
     Route: 048
  3. METHOTREXATE [Suspect]
     Active Substance: METHOTREXATE
     Indication: Hidradenitis
  4. PREDNISONE [Concomitant]
     Active Substance: PREDNISONE
     Indication: Hidradenitis
     Route: 048

REACTIONS (2)
  - Tardive dyskinesia [Recovering/Resolving]
  - Dyskinesia [Recovering/Resolving]
